FAERS Safety Report 13855053 (Version 1)
Quarter: 2017Q3

REPORT INFORMATION
  Report Type: Spontaneous
  Country: US (occurrence: US)
  Receive Date: 20170810
  Receipt Date: 20170810
  Transmission Date: 20171127
  Serious: Yes (Other)
  Sender: FDA-Public Use
  Company Number: US-PFIZER INC-2017344075

PATIENT
  Sex: Female

DRUGS (1)
  1. ADVIL [Suspect]
     Active Substance: IBUPROFEN
     Dosage: UNK

REACTIONS (30)
  - Protein total increased [Unknown]
  - Globulins increased [Unknown]
  - Joint dislocation [Unknown]
  - Arthralgia [Unknown]
  - Joint effusion [Unknown]
  - Rheumatoid factor positive [Unknown]
  - Joint injury [Unknown]
  - Arthropathy [Unknown]
  - Glossodynia [Unknown]
  - Dyspepsia [Unknown]
  - Joint swelling [Unknown]
  - Joint contracture [Unknown]
  - Joint warmth [Unknown]
  - Haemoglobin decreased [Unknown]
  - Swollen joint count decreased [Unknown]
  - Exostosis [Unknown]
  - Amnesia [Unknown]
  - Red blood cell sedimentation rate abnormal [Unknown]
  - Tender joint count decreased [Unknown]
  - Temperature intolerance [Unknown]
  - Anxiety [Unknown]
  - Foot deformity [Unknown]
  - Haematocrit decreased [Unknown]
  - Platelet count increased [Unknown]
  - Vitreous floaters [Unknown]
  - Dry eye [Unknown]
  - Joint destruction [Unknown]
  - Blood pressure abnormal [Unknown]
  - Depression [Unknown]
  - Soft tissue swelling [Unknown]
